FAERS Safety Report 13867068 (Version 1)
Quarter: 2017Q3

REPORT INFORMATION
  Report Type: Spontaneous
  Country: US (occurrence: US)
  Receive Date: 20170814
  Receipt Date: 20170814
  Transmission Date: 20171127
  Serious: No
  Sender: FDA-Public Use
  Company Number: US-BAYER-2017-141605

PATIENT

DRUGS (1)
  1. MIRALAX [Suspect]
     Active Substance: POLYETHYLENE GLYCOL 3350
     Dosage: 238 GRAMS WITH 64 OZ GATORADE DOSE
     Route: 048

REACTIONS (6)
  - Circumstance or information capable of leading to medication error [Unknown]
  - Off label use [Unknown]
  - Incorrect dose administered [Unknown]
  - Therapeutic response unexpected [Unknown]
  - Wrong technique in product usage process [Unknown]
  - Drug administration error [Unknown]
